FAERS Safety Report 5224109-8 (Version None)
Quarter: 2007Q1

REPORT INFORMATION
  Report Type: 
  Country: None (occurrence: None)
  Receive Date: 20070126
  Receipt Date: 20070110
  Transmission Date: 20070707
  Serious: Yes (Other)
  Sender: FDA-Public Use
  Company Number: DSA_29229_2007

PATIENT
  Sex: Female

DRUGS (3)
  1. TAVOR         /00273201/ [Suspect]
     Dosage: DF PO
     Route: 048
     Dates: start: 20020101
  2. RIVOTRIL [Suspect]
     Dosage: DF PO
     Route: 048
     Dates: start: 20020101
  3. TRILEPTAL [Suspect]
     Dosage: DF PO
     Route: 048
     Dates: start: 20061005

REACTIONS (7)
  - CONDITION AGGRAVATED [None]
  - DRUG INEFFECTIVE [None]
  - FALL [None]
  - GAIT DISTURBANCE [None]
  - MONOPLEGIA [None]
  - MUSCULOSKELETAL STIFFNESS [None]
  - NEURALGIA [None]
